FAERS Safety Report 8625583-7 (Version None)
Quarter: 2012Q3

REPORT INFORMATION
  Report Type: 
  Country: None (occurrence: None)
  Receive Date: 20120827
  Receipt Date: 20120823
  Transmission Date: 20120928
  Serious: Yes (Other)
  Sender: FDA-Public Use
  Company Number: US-JNJFOC-20120812792

PATIENT
  Sex: Female
  Weight: 44.4 kg

DRUGS (14)
  1. BENADRYL [Concomitant]
  2. REMICADE [Suspect]
     Route: 042
     Dates: start: 20120720
  3. NEURONTIN [Concomitant]
  4. HUMIRA [Concomitant]
  5. ANTIBIOTICS [Concomitant]
  6. DILAUDID [Concomitant]
  7. BIOTIN [Concomitant]
  8. VANCOMYCIN [Concomitant]
  9. METHOTREXATE [Concomitant]
  10. REMICADE [Suspect]
     Route: 042
  11. FENTANYL [Concomitant]
  12. FLONASE [Concomitant]
  13. REMICADE [Suspect]
     Indication: CROHN'S DISEASE
     Route: 042
  14. VITAMIN D [Concomitant]

REACTIONS (1)
  - CELLULITIS [None]
